FAERS Safety Report 11877056 (Version 1)
Quarter: 2015Q4

REPORT INFORMATION
  Report Type: Spontaneous
  Country: US (occurrence: US)
  Receive Date: 20151229
  Receipt Date: 20151229
  Transmission Date: 20160305
  Serious: No
  Sender: FDA-Public Use
  Company Number: US-AKRIMAX-TIR-2015-0488

PATIENT
  Age: 81 Year
  Sex: Female
  Weight: 56.75 kg

DRUGS (1)
  1. TIROSINT [Suspect]
     Active Substance: LEVOTHYROXINE SODIUM
     Indication: BASEDOW^S DISEASE
     Dosage: ONE 75MCG CAPSULE DAILY
     Route: 048
     Dates: start: 201507

REACTIONS (8)
  - Intervertebral disc disorder [Unknown]
  - Asthenia [Unknown]
  - Dizziness [Unknown]
  - Balance disorder [Unknown]
  - Paraesthesia [Unknown]
  - Dizziness [Unknown]
  - Head discomfort [Unknown]
  - Blood pressure increased [Unknown]

NARRATIVE: CASE EVENT DATE: 201507
